FAERS Safety Report 24845361 (Version 1)
Quarter: 2025Q1

REPORT INFORMATION
  Report Type: Spontaneous
  Country: CA (occurrence: CA)
  Receive Date: 20250115
  Receipt Date: 20250115
  Transmission Date: 20250409
  Serious: Yes (Hospitalization)
  Sender: Unknown Manufacturer
  Company Number: CA-862174955-ML2025-00128

PATIENT
  Age: 78 Year
  Sex: Female

DRUGS (2)
  1. RANOLAZINE [Suspect]
     Active Substance: RANOLAZINE
     Indication: Angina pectoris
     Route: 048
     Dates: start: 20200101
  2. RANOLAZINE [Suspect]
     Active Substance: RANOLAZINE
     Dosage: 500MG BID SINCE DEC 2024
     Route: 048
     Dates: start: 202412

REACTIONS (1)
  - Hospitalisation [Unknown]

NARRATIVE: CASE EVENT DATE: 20241201
